FAERS Safety Report 4662530-7 (Version None)
Quarter: 2005Q2

REPORT INFORMATION
  Report Type: 
  Country: None (occurrence: None)
  Receive Date: 20050516
  Receipt Date: 20050505
  Transmission Date: 20051028
  Serious: Yes (Hospitalization)
  Sender: FDA-Public Use
  Company Number: PA-ROCHE-404145

PATIENT
  Age: 75 Year
  Sex: Male
  Weight: 80.5 kg

DRUGS (5)
  1. XELODA [Suspect]
     Indication: SQUAMOUS CELL CARCINOMA
     Route: 048
     Dates: start: 20050415, end: 20050425
  2. SALAGEN [Concomitant]
     Route: 048
     Dates: start: 20040827
  3. CALCIUM/VITAMIN D [Concomitant]
     Indication: HYPOCALCAEMIA
     Route: 048
     Dates: start: 20040106
  4. VITAMIN D [Concomitant]
     Indication: HYPOCALCAEMIA
     Route: 048
     Dates: start: 20040106
  5. SYNTHROID [Concomitant]
     Indication: HYPOTHYROIDISM
     Route: 048
     Dates: start: 20040106

REACTIONS (3)
  - ATRIOVENTRICULAR BLOCK COMPLETE [None]
  - SINUS BRADYCARDIA [None]
  - SYNCOPE [None]
